FAERS Safety Report 8828669 (Version 3)
Quarter: 2013Q1

REPORT INFORMATION
  Report Type: Spontaneous
  Country: US (occurrence: US)
  Receive Date: 20121005
  Receipt Date: 20130201
  Transmission Date: 20140127
  Serious: Yes (Hospitalization, Other)
  Sender: FDA-Public Use
  Company Number: US-ASTELLAS-2012US009756

PATIENT
  Age: 82 Year
  Sex: Female

DRUGS (7)
  1. VESICARE [Suspect]
     Indication: INCONTINENCE
     Dosage: 5 MG, UID/QD
     Route: 048
     Dates: start: 2008
  2. VESICARE [Suspect]
     Dosage: 10 MG, UID/QD
     Route: 048
     Dates: end: 20121101
  3. SIMVASTATIN [Concomitant]
     Indication: PRODUCT USED FOR UNKNOWN INDICATION
     Dosage: 40 MG, UID/QD
     Route: 065
  4. LOSARTAN [Concomitant]
     Indication: PRODUCT USED FOR UNKNOWN INDICATION
     Dosage: 50 MG, UID/QD
     Route: 065
  5. LORAZEPAM [Concomitant]
     Indication: PRODUCT USED FOR UNKNOWN INDICATION
     Dosage: 0.5 MG, BID
     Route: 065
  6. OMEPRAZOLE [Concomitant]
     Indication: PRODUCT USED FOR UNKNOWN INDICATION
     Dosage: 20 MG, UID/QD
     Route: 065
  7. ESTROPIPATE [Concomitant]
     Indication: PRODUCT USED FOR UNKNOWN INDICATION
     Dosage: 0.75 MG, 3XWEEKLY, M-W-F
     Route: 065

REACTIONS (6)
  - Drug ineffective [Unknown]
  - Large intestine benign neoplasm [Unknown]
  - Syncope [Unknown]
  - Constipation [Recovered/Resolved]
  - Laceration [Unknown]
  - Urinary tract infection [Unknown]
